FAERS Safety Report 5002401-X (Version None)
Quarter: 2006Q2

REPORT INFORMATION
  Report Type: 
  Country: None (occurrence: None)
  Receive Date: 20060510
  Receipt Date: 20060426
  Transmission Date: 20061013
  Serious: Yes (Hospitalization)
  Sender: FDA-Public Use
  Company Number: 2006PV012866

PATIENT
  Age: 74 Year
  Sex: Male
  Weight: 117.9352 kg

DRUGS (14)
  1. BYETTA [Suspect]
     Indication: DIABETES MELLITUS NON-INSULIN-DEPENDENT
     Dosage: 10 MCG; BID; SC
     Route: 058
  2. INSULIN GLARGINE [Concomitant]
  3. AMARYL [Concomitant]
  4. METFORMIN [Concomitant]
  5. LIPITOR [Concomitant]
  6. PLAVIX [Concomitant]
  7. WELLBUTRIN [Concomitant]
  8. POTASSIUM [Concomitant]
  9. TRAZODONE HCL [Concomitant]
  10. TORSEMIDE [Concomitant]
  11. VITAMINS [Concomitant]
  12. VITAMIN B-12 [Concomitant]
  13. AVANDIA [Concomitant]
  14. STARLIX [Concomitant]

REACTIONS (3)
  - PYURIA [None]
  - SMALL INTESTINAL OBSTRUCTION [None]
  - WEIGHT DECREASED [None]
